FAERS Safety Report 8056099-7 (Version None)
Quarter: 2012Q1

REPORT INFORMATION
  Report Type: 
  Country: None (occurrence: None)
  Receive Date: 20120119
  Receipt Date: 20120112
  Transmission Date: 20120608
  Serious: Yes (Other)
  Sender: FDA-Public Use
  Company Number: BR-BRISTOL-MYERS SQUIBB COMPANY-16349276

PATIENT
  Sex: Female

DRUGS (1)
  1. IRBESARTAN [Suspect]

REACTIONS (1)
  - INFARCTION [None]
